FAERS Safety Report 20460936 (Version 1)
Quarter: 2022Q1

REPORT INFORMATION
  Report Type: Spontaneous
  Country: US (occurrence: US)
  Receive Date: 20220211
  Receipt Date: 20220211
  Transmission Date: 20220424
  Serious: No
  Sender: FDA-Public Use
  Company Number: US-PERRIGO-21US028271

PATIENT
  Age: 67 Year
  Sex: Female
  Weight: 88.435 kg

DRUGS (7)
  1. LOPERAMIDE HYDROCHLORIDE [Suspect]
     Active Substance: LOPERAMIDE HYDROCHLORIDE
     Indication: Diarrhoea
     Dosage: 4 MG, QID
     Route: 048
     Dates: start: 202010
  2. BENTYL [Concomitant]
     Active Substance: DICYCLOMINE HYDROCHLORIDE
     Indication: Crohn^s disease
     Dosage: UNKNOWN, BID
     Route: 065
     Dates: start: 2019
  3. BENTYL [Concomitant]
     Active Substance: DICYCLOMINE HYDROCHLORIDE
     Indication: Colitis ulcerative
  4. LOMOTIL                            /00034001/ [Concomitant]
     Indication: Crohn^s disease
     Dosage: 2-3, QID
     Route: 065
     Dates: start: 1984
  5. LOMOTIL                            /00034001/ [Concomitant]
     Indication: Colitis ulcerative
  6. HUMALOG [Concomitant]
     Active Substance: INSULIN LISPRO
     Indication: Diabetes mellitus
     Dosage: UNKNOWN, UNKNOWN
     Route: 065
     Dates: start: 2018
  7. DEXILANT [Concomitant]
     Active Substance: DEXLANSOPRAZOLE
     Indication: Abdominal pain upper
     Dosage: UNKNOWN, UNKNOWN
     Route: 065

REACTIONS (2)
  - Intentional product use issue [Unknown]
  - Incorrect product administration duration [Unknown]

NARRATIVE: CASE EVENT DATE: 20201001
